FAERS Safety Report 9824153 (Version 2)
Quarter: 2014Q1

REPORT INFORMATION
  Report Type: Spontaneous
  Country: US (occurrence: US)
  Receive Date: 20140116
  Receipt Date: 20140312
  Transmission Date: 20141002
  Serious: Yes (Hospitalization)
  Sender: FDA-Public Use
  Company Number: US-GLAXOSMITHKLINE-A1056179A

PATIENT
  Age: 85 Year
  Sex: Female

DRUGS (4)
  1. ADVAIR [Suspect]
     Indication: CHRONIC OBSTRUCTIVE PULMONARY DISEASE
     Dosage: 1PUFF TWICE PER DAY
     Route: 055
     Dates: start: 2000
  2. COUMADIN [Concomitant]
  3. DILTIAZEM [Concomitant]
  4. ALBUTEROL + IPRATROPIUM BROMIDE [Concomitant]

REACTIONS (5)
  - Pneumonia [Unknown]
  - Neuralgia [Recovering/Resolving]
  - Chest pain [Recovering/Resolving]
  - Bone pain [Recovering/Resolving]
  - Thrombosis [Recovered/Resolved]
